FAERS Safety Report 5578196-8 (Version None)
Quarter: 2007Q4

REPORT INFORMATION
  Report Type: 
  Country: None (occurrence: None)
  Receive Date: 20071231
  Receipt Date: 20071220
  Transmission Date: 20080405
  Serious: Yes (Hospitalization)
  Sender: FDA-Public Use
  Company Number: ES-PFIZER INC-2007107885

PATIENT
  Age: 79 Year
  Sex: Male

DRUGS (2)
  1. DOXAZOSIN [Suspect]
     Indication: RENOVASCULAR HYPERTENSION
     Route: 048
  2. ENALAPRIL MALEATE [Concomitant]
     Route: 048

REACTIONS (2)
  - ATRIOVENTRICULAR BLOCK SECOND DEGREE [None]
  - DRUG INTERACTION [None]
